FAERS Safety Report 8454765-2 (Version None)
Quarter: 2012Q2

REPORT INFORMATION
  Report Type: 
  Country: None (occurrence: None)
  Receive Date: 20120614
  Receipt Date: 20120530
  Transmission Date: 20120825
  Serious: Yes (Other)
  Sender: FDA-Public Use
  Company Number: COL_11732_2012

PATIENT
  Age: 74 Year
  Sex: Male
  Weight: 68.9 kg

DRUGS (6)
  1. ADALAT CC [Concomitant]
  2. SIMVASTATIN [Concomitant]
  3. ENALAPRIL MALEATE [Concomitant]
  4. DURAPHAT 5000 PPM FLUORIDE TOOTHPASTE (COLGATE-PALMOLIVE (UK) LIMITED) [Suspect]
     Indication: DENTAL CARIES
     Dosage: (NI/NI/ TOPICAL
     Route: 061
     Dates: start: 20120329, end: 20120402
  5. ATENOLOL [Concomitant]
  6. ASPIRIN [Concomitant]

REACTIONS (3)
  - RASH PRURITIC [None]
  - ALOPECIA [None]
  - SKIN EXFOLIATION [None]
